FAERS Safety Report 13592046 (Version 2)
Quarter: 2017Q2

REPORT INFORMATION
  Report Type: Spontaneous
  Country: CO (occurrence: CO)
  Receive Date: 20170530
  Receipt Date: 20170627
  Transmission Date: 20170830
  Serious: Yes (Other)
  Sender: FDA-Public Use
  Company Number: CO-BAYER-2017-096134

PATIENT
  Age: 74 Year
  Sex: Male
  Weight: 63 kg

DRUGS (3)
  1. CLARITHROMYCIN. [Concomitant]
     Active Substance: CLARITHROMYCIN
     Indication: HELICOBACTER INFECTION
     Dosage: UNK
     Dates: start: 201703
  2. AMOXICILLIN. [Concomitant]
     Active Substance: AMOXICILLIN
     Indication: HELICOBACTER INFECTION
     Dosage: UNK
     Dates: start: 201703
  3. NEXAVAR [Suspect]
     Active Substance: SORAFENIB
     Indication: HEPATOCELLULAR CARCINOMA
     Dosage: UNK
     Dates: start: 20170125, end: 20170429

REACTIONS (5)
  - Eye haemorrhage [Unknown]
  - Visual acuity reduced [Not Recovered/Not Resolved]
  - Retinal haemorrhage [Unknown]
  - Vitreous haemorrhage [Not Recovered/Not Resolved]
  - Retinal injury [Unknown]

NARRATIVE: CASE EVENT DATE: 20170428
